FAERS Safety Report 17988310 (Version 1)
Quarter: 2020Q3

REPORT INFORMATION
  Report Type: Spontaneous
  Country: CN (occurrence: CN)
  Receive Date: 20200707
  Receipt Date: 20200707
  Transmission Date: 20201103
  Serious: Yes (Other)
  Sender: FDA-Public Use
  Company Number: CN-ROCHE-2633655

PATIENT
  Age: 49 Year
  Sex: Female
  Weight: 64 kg

DRUGS (22)
  1. FOLINIC ACID [Concomitant]
     Active Substance: LEUCOVORIN
     Indication: METASTASES TO LIVER
     Dosage: 5 CYCLES
     Route: 065
     Dates: start: 20180201
  2. FLUOROURACIL. [Concomitant]
     Active Substance: FLUOROURACIL
     Indication: ADENOCARCINOMA OF COLON
     Dosage: 5 CYCLES
     Route: 065
     Dates: start: 20171101
  3. REGORAFENIB. [Concomitant]
     Active Substance: REGORAFENIB
     Dosage: 3 CYCLES
     Route: 065
     Dates: start: 20191012
  4. OXALIPLATIN. [Suspect]
     Active Substance: OXALIPLATIN
     Indication: ADENOCARCINOMA OF COLON
     Dosage: 5 CYCLES
     Route: 065
     Dates: start: 201711, end: 201801
  5. OXALIPLATIN. [Suspect]
     Active Substance: OXALIPLATIN
     Dosage: 9 CYCLES
     Route: 065
     Dates: start: 201810, end: 201907
  6. FLUOROURACIL. [Concomitant]
     Active Substance: FLUOROURACIL
     Dosage: 9 CYCLES
     Route: 065
     Dates: start: 20181001
  7. XELODA [Suspect]
     Active Substance: CAPECITABINE
     Indication: ADENOCARCINOMA OF COLON
     Dosage: 6 CYCLES
     Route: 048
     Dates: start: 201805, end: 201809
  8. FLUOROURACIL. [Concomitant]
     Active Substance: FLUOROURACIL
     Indication: METASTASES TO LIVER
     Dosage: 5 CYCLES
     Route: 065
     Dates: start: 20180201
  9. AVASTIN [Suspect]
     Active Substance: BEVACIZUMAB
     Indication: ADENOCARCINOMA OF COLON
     Dosage: 5 CYCLES
     Route: 041
     Dates: start: 201802
  10. FOLINIC ACID [Concomitant]
     Active Substance: LEUCOVORIN
     Dosage: 9 CYCLES
     Route: 065
     Dates: start: 20181001
  11. REGORAFENIB. [Concomitant]
     Active Substance: REGORAFENIB
     Indication: METASTASES TO LIVER
     Dosage: D8?D14
     Route: 065
     Dates: start: 20191012
  12. CETUXIMAB. [Concomitant]
     Active Substance: CETUXIMAB
     Indication: ADENOCARCINOMA OF COLON
     Dosage: 8 CYCLES
     Route: 065
     Dates: start: 20200106
  13. CETUXIMAB. [Concomitant]
     Active Substance: CETUXIMAB
     Indication: METASTASES TO LIVER
  14. RALTITREXED [Concomitant]
     Active Substance: RALTITREXED
     Indication: METASTASES TO LIVER
  15. XELODA [Suspect]
     Active Substance: CAPECITABINE
     Indication: METASTASES TO LIVER
  16. OXALIPLATIN. [Suspect]
     Active Substance: OXALIPLATIN
     Indication: METASTASES TO LIVER
     Dosage: 5 CYCLES
     Route: 065
     Dates: start: 201802, end: 201805
  17. RALTITREXED [Concomitant]
     Active Substance: RALTITREXED
     Indication: ADENOCARCINOMA OF COLON
     Dosage: 8 CYCLES
     Route: 065
     Dates: start: 20200106
  18. AVASTIN [Suspect]
     Active Substance: BEVACIZUMAB
     Indication: METASTASES TO LIVER
     Dosage: 6 CYCLES
     Route: 041
     Dates: start: 20180605
  19. REGORAFENIB. [Concomitant]
     Active Substance: REGORAFENIB
     Dosage: D15?D21
     Route: 065
     Dates: start: 20191012
  20. AVASTIN [Suspect]
     Active Substance: BEVACIZUMAB
     Dosage: 9 CYCLES
     Route: 041
     Dates: start: 201810
  21. FOLINIC ACID [Concomitant]
     Active Substance: LEUCOVORIN
     Indication: ADENOCARCINOMA OF COLON
     Dosage: 5 CYCLES
     Route: 065
     Dates: start: 20171101
  22. REGORAFENIB. [Concomitant]
     Active Substance: REGORAFENIB
     Indication: ADENOCARCINOMA OF COLON
     Dosage: D1?D7
     Route: 065
     Dates: start: 20191012

REACTIONS (4)
  - Ill-defined disorder [Unknown]
  - Dermatitis acneiform [Unknown]
  - Neurotoxicity [Unknown]
  - Drug-induced liver injury [Unknown]
